FAERS Safety Report 8809454 (Version 1)
Quarter: 2012Q4

REPORT INFORMATION
  Report Type: 
  Country: US (occurrence: US)
  Receive Date: 20120926
  Receipt Date: 20120926
  Transmission Date: 20130627
  Serious: Yes (Other)
  Sender: FDA-Public Use
  Company Number: US-ROCHE-1127821

PATIENT
  Sex: Female

DRUGS (7)
  1. AVASTIN [Suspect]
     Indication: BREAST CANCER FEMALE
     Dosage: 6 doses
     Route: 065
     Dates: start: 20051005, end: 20060112
  2. XELODA [Suspect]
     Indication: PRODUCT USED FOR UNKNOWN INDICATION
     Route: 065
     Dates: start: 200509, end: 200601
  3. ADRIAMYCIN [Concomitant]
     Route: 065
     Dates: start: 20050114, end: 200503
  4. DOCETAXEL [Concomitant]
     Route: 065
     Dates: start: 20050114
  5. TAXOTERE [Concomitant]
     Route: 065
     Dates: start: 200502, end: 200503
  6. CYCLOPHOSPHAMIDE [Concomitant]
     Route: 065
     Dates: start: 200502, end: 200503
  7. VINORELBINE [Concomitant]
     Route: 065
     Dates: start: 200507, end: 200509

REACTIONS (2)
  - Metastases to spine [Unknown]
  - Back pain [Unknown]
